FAERS Safety Report 7292983-X (Version None)
Quarter: 2011Q1

REPORT INFORMATION
  Report Type: 
  Country: None (occurrence: None)
  Receive Date: 20110215
  Receipt Date: 20110208
  Transmission Date: 20110831
  Serious: Yes (Other)
  Sender: FDA-Public Use
  Company Number: BR-ROCHE-565952

PATIENT
  Sex: Female
  Weight: 89 kg

DRUGS (6)
  1. XENICAL [Suspect]
     Route: 048
     Dates: start: 20080430
  2. XENICAL [Suspect]
     Indication: WEIGHT CONTROL
     Route: 048
     Dates: start: 20010101, end: 20071101
  3. FORADIL [Concomitant]
     Indication: ASTHMA
     Dosage: OTHER INDICATION: BRONCHITIS
  4. SYMBICORT [Concomitant]
     Indication: ASTHMA
     Dosage: OTHER INDICATION:  BRONCHITIS
  5. SINGULAIR [Concomitant]
     Indication: ASTHMA
     Dosage: OTHER INDICATION: BRONCHITIS
  6. AMLODIPINE [Concomitant]
     Indication: HYPERTENSION

REACTIONS (5)
  - ROAD TRAFFIC ACCIDENT [None]
  - ABDOMINAL HERNIA [None]
  - DIARRHOEA [None]
  - STEATORRHOEA [None]
  - UNEVALUABLE EVENT [None]
